FAERS Safety Report 14003857 (Version 3)
Quarter: 2017Q4

REPORT INFORMATION
  Report Type: Spontaneous
  Country: US (occurrence: US)
  Receive Date: 20170922
  Receipt Date: 20171124
  Transmission Date: 20180321
  Serious: Yes (Other)
  Sender: FDA-Public Use
  Company Number: US-JNJFOC-20170823843

PATIENT
  Age: 23 Year
  Sex: Female
  Weight: 49.9 kg

DRUGS (32)
  1. REMICADE [Suspect]
     Active Substance: INFLIXIMAB
     Indication: COLITIS ULCERATIVE
     Route: 042
     Dates: start: 201707
  2. ZINC ACETATE [Concomitant]
     Active Substance: ZINC ACETATE
     Route: 048
  3. COLESTID [Concomitant]
     Active Substance: COLESTIPOL HYDROCHLORIDE
     Indication: DIARRHOEA
     Route: 048
  4. VITAMINE C [Concomitant]
     Active Substance: ASCORBIC ACID
     Route: 048
  5. NEXIUM [Concomitant]
     Active Substance: ESOMEPRAZOLE MAGNESIUM
     Route: 065
  6. EPIPEN [Concomitant]
     Active Substance: EPINEPHRINE
     Indication: MULTIPLE ALLERGIES
     Route: 065
  7. FOLVITE [Concomitant]
     Active Substance: FOLIC ACID
     Route: 048
  8. IRON [Concomitant]
     Active Substance: IRON
     Route: 048
  9. ULTRAM [Concomitant]
     Active Substance: TRAMADOL HYDROCHLORIDE
     Route: 048
  10. ZOFRAN [Concomitant]
     Active Substance: ONDANSETRON HYDROCHLORIDE
     Indication: VOMITING
     Dosage: 30 TABLET
     Route: 048
  11. ZOFRAN [Concomitant]
     Active Substance: ONDANSETRON HYDROCHLORIDE
     Indication: NAUSEA
     Dosage: 30 TABLET
     Route: 048
  12. REMICADE [Suspect]
     Active Substance: INFLIXIMAB
     Indication: COLITIS ULCERATIVE
     Route: 042
     Dates: start: 20161221
  13. PROVENTIL [Concomitant]
     Active Substance: ALBUTEROL
     Indication: FOOD ALLERGY
     Dosage: 8.5 G
     Route: 055
  14. DICYCLOMINE [Concomitant]
     Active Substance: DICYCLOMINE HYDROCHLORIDE
     Indication: IRRITABLE BOWEL SYNDROME
     Dosage: AS NEEDED
     Route: 048
  15. PHENERGAN [Concomitant]
     Active Substance: PROMETHAZINE HYDROCHLORIDE
     Dosage: 30 TABLET 2 REFILL
     Route: 048
  16. BENADRYL [Concomitant]
     Active Substance: DIPHENHYDRAMINE HYDROCHLORIDE
     Indication: PREMEDICATION
     Route: 048
  17. BENTYL [Concomitant]
     Active Substance: DICYCLOMINE HYDROCHLORIDE
     Indication: ABDOMINAL PAIN
     Route: 048
  18. FLORA Q [Concomitant]
     Active Substance: LACTOBACILLUS ACIDOPHILUS
     Route: 048
  19. REMICADE [Suspect]
     Active Substance: INFLIXIMAB
     Indication: COLITIS ULCERATIVE
     Route: 042
     Dates: start: 2017
  20. LEVSIN [Concomitant]
     Active Substance: HYOSCYAMINE SULFATE
     Indication: ABDOMINAL PAIN
     Dosage: AS NEEDED
     Route: 065
  21. UCERIS [Concomitant]
     Active Substance: BUDESONIDE
     Route: 065
  22. REMICADE [Suspect]
     Active Substance: INFLIXIMAB
     Indication: COLITIS ULCERATIVE
     Route: 042
     Dates: start: 20170104
  23. REMICADE [Suspect]
     Active Substance: INFLIXIMAB
     Indication: COLITIS ULCERATIVE
     Route: 042
     Dates: start: 20170518
  24. LIALDA [Concomitant]
     Active Substance: MESALAMINE
     Dosage: 4 TABLETS EVERY MORNING, 3 REFILL
     Route: 065
  25. CALCIUM CARBONATE. [Concomitant]
     Active Substance: CALCIUM CARBONATE
     Route: 048
  26. EPIPEN [Concomitant]
     Active Substance: EPINEPHRINE
     Indication: ANAPHYLACTIC REACTION
     Route: 065
  27. TYLENOL [Concomitant]
     Active Substance: ACETAMINOPHEN
     Indication: PREMEDICATION
     Route: 048
  28. PROTONIX [Concomitant]
     Active Substance: PANTOPRAZOLE SODIUM
     Dosage: 6 REFILLS
     Route: 048
  29. PROVENTIL [Concomitant]
     Active Substance: ALBUTEROL
     Indication: WHEEZING
     Dosage: 8.5 G
     Route: 055
  30. BENTYL [Concomitant]
     Active Substance: DICYCLOMINE HYDROCHLORIDE
     Indication: ABDOMINAL PAIN
     Route: 048
  31. CRANBERRY. [Concomitant]
     Active Substance: CRANBERRY
     Route: 048
  32. MAGNESIUM [Concomitant]
     Active Substance: MAGNESIUM
     Route: 048

REACTIONS (8)
  - Type IV hypersensitivity reaction [Unknown]
  - Alopecia [Recovered/Resolved]
  - Colitis ulcerative [Not Recovered/Not Resolved]
  - Skin lesion [Not Recovered/Not Resolved]
  - Serum sickness [Unknown]
  - Contusion [Recovered/Resolved]
  - Therapeutic response delayed [Unknown]
  - Chromaturia [Recovered/Resolved]

NARRATIVE: CASE EVENT DATE: 2017
